FAERS Safety Report 6390961-6 (Version None)
Quarter: 2009Q4

REPORT INFORMATION
  Report Type: 
  Country: None (occurrence: None)
  Receive Date: 20091001
  Receipt Date: 20090730
  Transmission Date: 20100525
  Serious: Yes (Other)
  Sender: FDA-Public Use
  Company Number: 202632USA

PATIENT
  Age: 32 Year
  Sex: Female

DRUGS (1)
  1. TOPIRAMATE [Suspect]
     Indication: EPILEPSY
     Dosage: 300 MG (100 MG, 3 IN 1 D),ORAL
     Route: 048
     Dates: start: 20090401

REACTIONS (17)
  - AMNESIA [None]
  - BLOOD URINE PRESENT [None]
  - CONSTIPATION [None]
  - DISTURBANCE IN ATTENTION [None]
  - DIZZINESS [None]
  - DYSPNOEA [None]
  - FUNGAL INFECTION [None]
  - MENTAL DISORDER [None]
  - MOOD ALTERED [None]
  - PRURITUS [None]
  - RASH [None]
  - SPEECH DISORDER [None]
  - SUICIDAL IDEATION [None]
  - SWELLING [None]
  - TREMOR [None]
  - URINARY TRACT INFECTION [None]
  - URTICARIA [None]
